FAERS Safety Report 14008188 (Version 1)
Quarter: 2017Q3

REPORT INFORMATION
  Report Type: Report from Study
  Country: US (occurrence: US)
  Receive Date: 20170925
  Receipt Date: 20170925
  Transmission Date: 20171128
  Serious: Yes (Hospitalization, Other)
  Sender: FDA-Public Use
  Company Number: US-SHIRE-US201718597

PATIENT
  Sex: Female
  Weight: 56.78 kg

DRUGS (1)
  1. GATTEX [Suspect]
     Active Substance: TEDUGLUTIDE\WATER
     Indication: SHORT-BOWEL SYNDROME
     Dosage: 0.284 ML, 1X/DAY:QD
     Route: 058
     Dates: start: 20170613

REACTIONS (1)
  - Neoplasm malignant [Unknown]
